FAERS Safety Report 5445875-2 (Version None)
Quarter: 2007Q3

REPORT INFORMATION
  Report Type: 
  Country: None (occurrence: None)
  Receive Date: 20070907
  Receipt Date: 20070904
  Transmission Date: 20080115
  Serious: Yes (Disabling, Other)
  Sender: FDA-Public Use
  Company Number: PHEH2007US04908

PATIENT
  Age: 76 Year
  Sex: Female
  Weight: 78.911 kg

DRUGS (15)
  1. CELEBREX [Concomitant]
     Indication: OSTEOARTHRITIS
     Dosage: 200 MG, UNK
     Route: 048
     Dates: end: 20070301
  2. MOBIC [Concomitant]
     Indication: OSTEOARTHRITIS
     Route: 048
     Dates: start: 20070301
  3. ACCUPRIL [Concomitant]
     Indication: HYPERTENSION
     Dosage: 40 MG, UNK
     Route: 048
     Dates: start: 19900101
  4. WELCHOL [Concomitant]
     Indication: HYPERCHOLESTEROLAEMIA
     Dosage: 625 MG, UNK
     Route: 048
     Dates: start: 20000101
  5. SYNTHROID [Concomitant]
     Indication: THYROIDECTOMY
     Dosage: 0.1 MG, UNK
     Route: 048
     Dates: start: 19800101
  6. PREMARIN [Concomitant]
     Indication: HORMONE REPLACEMENT THERAPY
     Dosage: 0.9 MG, UNK
     Route: 048
     Dates: start: 20060101
  7. PLAVIX [Concomitant]
     Indication: OPTIC ISCHAEMIC NEUROPATHY
     Route: 048
     Dates: start: 20060901
  8. MIRALAX [Concomitant]
     Indication: CONSTIPATION
     Route: 048
     Dates: start: 20070401
  9. NORVASC [Concomitant]
     Dosage: 5 MG, UNK
     Route: 048
  10. FOSAMAX [Concomitant]
     Dosage: 35 MG, UNK
     Route: 048
  11. VITAMIN CAP [Concomitant]
     Route: 048
  12. CALCIUM [Concomitant]
     Route: 048
  13. VITAMIN E [Concomitant]
     Route: 048
  14. FLAXSEED OIL [Concomitant]
     Route: 048
  15. ZELNORM [Suspect]
     Indication: IRRITABLE BOWEL SYNDROME
     Dosage: 6 MG, BID
     Route: 048
     Dates: start: 20020925, end: 20070330

REACTIONS (4)
  - BLINDNESS [None]
  - CEREBROVASCULAR ACCIDENT [None]
  - OPTIC ISCHAEMIC NEUROPATHY [None]
  - VISION BLURRED [None]
